FAERS Safety Report 12785139 (Version 2)
Quarter: 2016Q4

REPORT INFORMATION
  Report Type: Spontaneous
  Country: JP (occurrence: JP)
  Receive Date: 20160927
  Receipt Date: 20161206
  Transmission Date: 20170207
  Serious: Yes (Hospitalization)
  Sender: FDA-Public Use
  Company Number: JP-BAYER-2016-186131

PATIENT
  Age: 74 Year
  Sex: Male
  Weight: 43.7 kg

DRUGS (7)
  1. NEXAVAR [Suspect]
     Active Substance: SORAFENIB
     Indication: HEPATOCELLULAR CARCINOMA
     Dosage: 400 MG DAILY DOSE
     Route: 048
     Dates: start: 20160616, end: 20160705
  2. ALLOPURINOL. [Concomitant]
     Active Substance: ALLOPURINOL
     Indication: HYPERURICAEMIA
     Dosage: DAILY DOSE 100 MG
     Route: 048
  3. NEXAVAR [Suspect]
     Active Substance: SORAFENIB
     Indication: HEPATOCELLULAR CARCINOMA
     Dosage: 600 MG DAILY DOSE
     Route: 048
     Dates: start: 20160706, end: 20160810
  4. FUROSEMIDE. [Concomitant]
     Active Substance: FUROSEMIDE
     Indication: HYPERTENSION
     Dosage: DAILY DOSE 20 MG
     Route: 048
  5. AMLODIPINE [Concomitant]
     Active Substance: AMLODIPINE BESYLATE
     Indication: HYPERTENSION
     Dosage: DAILY DOSE 10 MG
     Route: 048
  6. NEXAVAR [Suspect]
     Active Substance: SORAFENIB
     Indication: HEPATOCELLULAR CARCINOMA
     Dosage: 400 MG DAILY DOSE
     Route: 048
     Dates: start: 20160927
  7. AZILSARTAN [Concomitant]
     Active Substance: AZILSARTAN KAMEDOXOMIL
     Indication: HYPERTENSION
     Dosage: DAILY DOSE 20 MG
     Route: 048

REACTIONS (1)
  - Paraneoplastic dermatomyositis [Recovering/Resolving]

NARRATIVE: CASE EVENT DATE: 20160810
